FAERS Safety Report 7072127-X (Version None)
Quarter: 2010Q4

REPORT INFORMATION
  Report Type: 
  Country: None (occurrence: None)
  Receive Date: 20101029
  Receipt Date: 20091230
  Transmission Date: 20110411
  Serious: No
  Sender: FDA-Public Use
  Company Number: A0833244A

PATIENT
  Sex: Male

DRUGS (1)
  1. ADVAIR DISKUS 100/50 [Suspect]
     Indication: ASTHMA
     Dosage: 1PUFF TWICE PER DAY
     Route: 055

REACTIONS (4)
  - BONE DENSITY DECREASED [None]
  - HYPOTHALAMO-PITUITARY DISORDER [None]
  - LABORATORY TEST ABNORMAL [None]
  - SPINAL DISORDER [None]
